FAERS Safety Report 11115382 (Version 2)
Quarter: 2015Q2

REPORT INFORMATION
  Report Type: Spontaneous
  Country: US (occurrence: US)
  Receive Date: 20150515
  Receipt Date: 20150520
  Transmission Date: 20150821
  Serious: No
  Sender: FDA-Public Use
  Company Number: US-009507513-1505USA005282

PATIENT
  Age: 82 Year
  Sex: Female

DRUGS (2)
  1. REMERON [Suspect]
     Active Substance: MIRTAZAPINE
     Indication: PALPITATIONS
     Dosage: DOSE/FREQUENCY: ONE TABLET PRIOR TO SLEEPING
     Route: 048
     Dates: end: 20150428
  2. REMERON [Suspect]
     Active Substance: MIRTAZAPINE
     Indication: NERVOUSNESS

REACTIONS (2)
  - Drug ineffective [Unknown]
  - Insomnia [Recovering/Resolving]

NARRATIVE: CASE EVENT DATE: 20150421
